FAERS Safety Report 20619740 (Version 1)
Quarter: 2022Q1

REPORT INFORMATION
  Report Type: Report from Study
  Country: US (occurrence: US)
  Receive Date: 20220322
  Receipt Date: 20220322
  Transmission Date: 20220423
  Serious: Yes (Death, Other)
  Sender: FDA-Public Use
  Company Number: US-INSMED, INC.-2021-07882-US

PATIENT
  Sex: Female

DRUGS (4)
  1. ARIKAYCE [Suspect]
     Active Substance: AMIKACIN
     Indication: Mycobacterium avium complex infection
     Dosage: 590 MILLIGRAM, QD
     Route: 055
     Dates: start: 20210219, end: 2021
  2. ARIKAYCE [Suspect]
     Active Substance: AMIKACIN
     Indication: Mycobacterium abscessus infection
     Dosage: 590 MG, EVERY OTHER DAY
     Route: 055
     Dates: start: 2021, end: 2021
  3. ARIKAYCE [Suspect]
     Active Substance: AMIKACIN
     Dosage: 590 MILLIGRAM, QD
     Route: 055
     Dates: start: 2021, end: 2021
  4. ARIKAYCE [Suspect]
     Active Substance: AMIKACIN
     Dosage: 590 MILLIGRAM, TIW, MONDAY,WEDNESDAY AND FRIDAYS
     Route: 055
     Dates: start: 202106

REACTIONS (21)
  - Death [Fatal]
  - Chemotherapy [Not Recovered/Not Resolved]
  - Radiotherapy [Not Recovered/Not Resolved]
  - Cataract operation [Unknown]
  - Pulmonary congestion [Unknown]
  - Secretion discharge [Unknown]
  - Chest pain [Unknown]
  - Impaired self-care [Not Recovered/Not Resolved]
  - Chest discomfort [Recovering/Resolving]
  - Throat irritation [Recovered/Resolved]
  - Headache [Not Recovered/Not Resolved]
  - Cough [Not Recovered/Not Resolved]
  - Oropharyngeal pain [Unknown]
  - Malaise [Not Recovered/Not Resolved]
  - Dysphonia [Unknown]
  - Haemoptysis [Recovered/Resolved]
  - Haemoptysis [Unknown]
  - Off label use [Unknown]
  - Intentional dose omission [Unknown]
  - Device issue [Unknown]
  - Therapy interrupted [Unknown]

NARRATIVE: CASE EVENT DATE: 20210101
